FAERS Safety Report 6239181-6 (Version None)
Quarter: 2009Q2

REPORT INFORMATION
  Report Type: 
  Country: None (occurrence: None)
  Receive Date: 20090618
  Receipt Date: 20090618
  Transmission Date: 20091009
  Serious: Yes (Disabling)
  Sender: FDA-Public Use
  Company Number: None

PATIENT
  Age: 53 Year
  Sex: Female
  Weight: 79.3795 kg

DRUGS (1)
  1. ZICAM NASAL SPRAY AND SWABS [Suspect]
     Indication: NASOPHARYNGITIS
     Dosage: 3-4 SWABS DAILY FOR 1-2 DAYS NASAL SWAB
     Route: 045
     Dates: start: 20050901, end: 20051101

REACTIONS (2)
  - ANOSMIA [None]
  - HYPOGEUSIA [None]
